FAERS Safety Report 17420613 (Version 2)
Quarter: 2020Q1

REPORT INFORMATION
  Report Type: Report from Study
  Country: US (occurrence: US)
  Receive Date: 20200214
  Receipt Date: 20200227
  Transmission Date: 20200409
  Serious: Yes (Hospitalization, Other)
  Sender: FDA-Public Use
  Company Number: US-GILEAD-2020-0451076

PATIENT
  Age: 25 Year
  Sex: Male

DRUGS (1)
  1. AZTREONAM LYSINE [Suspect]
     Active Substance: AZTREONAM LYSINE
     Indication: CYSTIC FIBROSIS
     Dosage: EVERY MONTH75 MG, TID FOR 28 DAYS ON AND 28 DAYS OFF
     Route: 055

REACTIONS (3)
  - Pneumonia [Unknown]
  - Influenza like illness [Unknown]
  - Product dose omission [Unknown]
